FAERS Safety Report 16758992 (Version 1)
Quarter: 2019Q4

REPORT INFORMATION
  Report Type: Spontaneous
  Country: US (occurrence: US)
  Receive Date: 20190829
  Receipt Date: 20190829
  Transmission Date: 20200122
  Serious: Yes (Disabling, Other)
  Sender: FDA-Public Use
  Company Number: None

PATIENT
  Age: 52 Year
  Sex: Female
  Weight: 86.4 kg

DRUGS (9)
  1. CYMBALTA, [Concomitant]
  2. D3, K2, MULTI-VITAMIN, [Concomitant]
  3. STOOL SOFTENER (DOCUSATE) [Concomitant]
     Active Substance: DOCUSATE
  4. PERCOCET [Suspect]
     Active Substance: ACETAMINOPHEN\OXYCODONE HYDROCHLORIDE
     Indication: BACK PAIN
     Dosage: ?          QUANTITY:2 TABLET(S);?
     Route: 048
  5. ABILIFY [Concomitant]
     Active Substance: ARIPIPRAZOLE
  6. MORINGA [Concomitant]
  7. PROBIOTIC [Concomitant]
     Active Substance: PROBIOTICS NOS
  8. PERCOCET [Concomitant]
     Active Substance: ACETAMINOPHEN\OXYCODONE HYDROCHLORIDE
  9. TOPIRIMATE [Concomitant]
     Active Substance: TOPIRAMATE

REACTIONS (4)
  - Impaired quality of life [None]
  - Intentional product use issue [None]
  - Pain [None]
  - Loss of employment [None]

NARRATIVE: CASE EVENT DATE: 20171201
